FAERS Safety Report 25058530 (Version 1)
Quarter: 2025Q1

REPORT INFORMATION
  Report Type: Spontaneous
  Country: CA (occurrence: CA)
  Receive Date: 20250310
  Receipt Date: 20250310
  Transmission Date: 20250409
  Serious: Yes (Life-Threatening, Hospitalization)
  Sender: ACCORD
  Company Number: None

PATIENT
  Age: 2 Year
  Sex: Female
  Weight: 11 kg

DRUGS (23)
  1. METHOTREXATE [Suspect]
     Active Substance: METHOTREXATE
     Indication: Prophylaxis against graft versus host disease
     Route: 042
  2. CYCLOPHOSPHAMIDE [Suspect]
     Active Substance: CYCLOPHOSPHAMIDE
     Indication: Bone marrow conditioning regimen
     Route: 042
  3. BUSULFAN [Suspect]
     Active Substance: BUSULFAN
     Indication: Bone marrow conditioning regimen
     Route: 042
  4. ACETAMINOPHEN [Concomitant]
     Active Substance: ACETAMINOPHEN
  5. ACYCLOVIR [Concomitant]
     Active Substance: ACYCLOVIR
  6. ALTEPLASE [Concomitant]
     Active Substance: ALTEPLASE
     Route: 042
  7. AMLODIPINE [Concomitant]
     Active Substance: AMLODIPINE BESYLATE
     Route: 065
  8. THYMOCYTE IMMUNE GLOBULIN NOS [Concomitant]
     Active Substance: THYMOCYTE IMMUNE GLOBULIN NOS
  9. CEFEPIME [Concomitant]
     Active Substance: CEFEPIME HYDROCHLORIDE
     Route: 042
  10. CEFTAZIDIME [Concomitant]
     Active Substance: CEFTAZIDIME
  11. CYCLOSPORINE [Concomitant]
     Active Substance: CYCLOSPORINE
  12. FAMOTIDINE [Concomitant]
     Active Substance: FAMOTIDINE
     Route: 042
  13. FLUCONAZOLE [Concomitant]
     Active Substance: FLUCONAZOLE
  14. LACTULOSE [Concomitant]
     Active Substance: LACTULOSE
     Route: 048
  15. LEVETIRACETAM [Concomitant]
     Active Substance: LEVETIRACETAM
  16. LORAZEPAM [Concomitant]
     Active Substance: LORAZEPAM
  17. MAGNESIUM [Concomitant]
     Active Substance: MAGNESIUM
  18. METHYLPREDNISOLONE [Concomitant]
     Active Substance: METHYLPREDNISOLONE
  19. METOCLOPRAMIDE [Concomitant]
     Active Substance: METOCLOPRAMIDE
  20. OLANZAPINE [Concomitant]
     Active Substance: OLANZAPINE
  21. ONDANSETRON [Concomitant]
     Active Substance: ONDANSETRON
  22. POLYETHYLENE GLYCOL [Concomitant]
     Active Substance: POLYETHYLENE GLYCOL
  23. VANCOMYCIN [Concomitant]
     Active Substance: VANCOMYCIN

REACTIONS (3)
  - Mucosal inflammation [Recovered/Resolved]
  - Aplastic anaemia [Recovered/Resolved]
  - Venoocclusive disease [Recovered/Resolved]
